FAERS Safety Report 8972902 (Version 1)
Quarter: 2012Q4

REPORT INFORMATION
  Report Type: 
  Country: US (occurrence: US)
  Receive Date: 20121218
  Receipt Date: 20121218
  Transmission Date: 20130627
  Serious: No
  Sender: FDA-Public Use
  Company Number: US-BRISTOL-MYERS SQUIBB COMPANY-16951543

PATIENT
  Age: 30 Year
  Sex: Male
  Weight: 64.85 kg

DRUGS (3)
  1. ABILIFY [Suspect]
     Indication: DEPRESSION
     Dates: start: 2012
  2. RISPERIDONE [Concomitant]
  3. CITALOPRAM [Concomitant]
     Dosage: sleeping pill

REACTIONS (3)
  - Muscle tightness [Unknown]
  - Pain in extremity [Unknown]
  - Weight increased [Unknown]
